FAERS Safety Report 7806698-X (Version None)
Quarter: 2011Q4

REPORT INFORMATION
  Report Type: 
  Country: None (occurrence: None)
  Receive Date: 20111011
  Receipt Date: 20110930
  Transmission Date: 20120403
  Serious: Yes (Hospitalization)
  Sender: FDA-Public Use
  Company Number: DK-JNJFOC-20110506663

PATIENT
  Sex: Male

DRUGS (6)
  1. CLOPIDOGREL [Concomitant]
     Route: 048
     Dates: start: 20110501
  2. ADALAT [Concomitant]
     Route: 048
     Dates: start: 19960101
  3. REMICADE [Suspect]
     Indication: JUVENILE ARTHRITIS
     Route: 042
     Dates: start: 20110325, end: 20110325
  4. REMICADE [Suspect]
     Route: 042
     Dates: start: 20050524
  5. REMICADE [Suspect]
     Route: 042
     Dates: start: 20100111
  6. METHOTREXATE [Concomitant]
     Indication: JUVENILE ARTHRITIS
     Route: 048
     Dates: start: 20050829

REACTIONS (1)
  - CEREBRAL THROMBOSIS [None]
